FAERS Safety Report 9236905 (Version 4)
Quarter: 2013Q2

REPORT INFORMATION
  Report Type: Spontaneous
  Country: US (occurrence: US)
  Receive Date: 20130417
  Receipt Date: 20130616
  Transmission Date: 20140414
  Serious: Yes (Other)
  Sender: FDA-Public Use
  Company Number: US-PFIZER INC-2013119219

PATIENT
  Age: 65 Year
  Sex: Male

DRUGS (5)
  1. XELJANZ [Suspect]
     Indication: RHEUMATOID ARTHRITIS
     Dosage: 5 MG, 2X/DAY
     Route: 048
     Dates: start: 20130403
  2. AMLODIPINE BESYLATE [Concomitant]
     Dosage: 5 MG, UNK
  3. LISINOPRIL [Concomitant]
     Dosage: 40 MG, UNK
  4. GLIPIZIDE [Concomitant]
     Dosage: 5 MG, UNK
  5. ALEVE [Concomitant]
     Dosage: 220 MG, UNK

REACTIONS (4)
  - Diabetic ulcer [Unknown]
  - Diabetic foot [Unknown]
  - Nasopharyngitis [Recovering/Resolving]
  - Drug dose omission [Unknown]
